FAERS Safety Report 4737063-X (Version None)
Quarter: 2005Q3

REPORT INFORMATION
  Report Type: 
  Country: None (occurrence: None)
  Receive Date: 20050804
  Receipt Date: 20050728
  Transmission Date: 20060218
  Serious: Yes (Hospitalization)
  Sender: FDA-Public Use
  Company Number: 142724USA

PATIENT
  Age: 68 Year
  Sex: Female

DRUGS (4)
  1. PIMOZIDE [Suspect]
     Indication: ANXIETY
     Dosage: 2 MILLIGRAM
  2. AMITRIPTYLINE [Concomitant]
  3. TRIMETHOPRIM [Concomitant]
  4. VERAPAMIL [Concomitant]

REACTIONS (1)
  - EXTRAPYRAMIDAL DISORDER [None]
